FAERS Safety Report 10597443 (Version 1)
Quarter: 2014Q4

REPORT INFORMATION
  Report Type: Spontaneous
  Country: US (occurrence: None)
  Receive Date: 20141119
  Receipt Date: 20141119
  Transmission Date: 20150529
  Serious: Yes (Death)
  Sender: FDA-Public Use
  Company Number: IMP_08155_2014

PATIENT
  Age: 23 Year
  Sex: Male

DRUGS (3)
  1. METHADONE [Suspect]
     Active Substance: METHADONE HYDROCHLORIDE
     Indication: PRODUCT USED FOR UNKNOWN INDICATION
     Dosage: [NOT THE PRESCRIBED DOSE]
     Route: 048
  2. ALPRAZOLAM. [Suspect]
     Active Substance: ALPRAZOLAM
     Indication: PRODUCT USED FOR UNKNOWN INDICATION
     Dosage: [NOT THE PRESCRIBED DOSE]
     Route: 048
  3. CANNABIS [Suspect]
     Active Substance: CANNABIS SATIVA SUBSP. INDICA TOP
     Dosage: DF

REACTIONS (11)
  - Toxicity to various agents [None]
  - Apnoea [None]
  - Loss of consciousness [None]
  - Brain injury [None]
  - Acute kidney injury [None]
  - Rhabdomyolysis [None]
  - Central nervous system necrosis [None]
  - Intentional overdose [None]
  - Pulmonary oedema [None]
  - Pulse absent [None]
  - Multi-organ failure [None]
